FAERS Safety Report 8028039-8 (Version None)
Quarter: 2012Q1

REPORT INFORMATION
  Report Type: 
  Country: None (occurrence: None)
  Receive Date: 20120106
  Receipt Date: 20120105
  Transmission Date: 20120608
  Serious: Yes (Other)
  Sender: FDA-Public Use
  Company Number: US-ROCHE-1020094

PATIENT
  Sex: Female

DRUGS (7)
  1. PEGINTERFERON ALFA-2A [Suspect]
     Indication: HEPATITIS C
     Dates: start: 20110820
  2. COPEGUS [Suspect]
     Dosage: DIVIDED DOSES
  3. MILK OF MAGNESIA TAB [Concomitant]
  4. ZOLOFT [Concomitant]
  5. BOCEPREVIR [Suspect]
     Indication: HEPATITIS C
     Dates: start: 20110910
  6. NEURONTIN [Concomitant]
  7. COPEGUS [Suspect]
     Indication: HEPATITIS C
     Dates: start: 20110820

REACTIONS (5)
  - WEIGHT INCREASED [None]
  - INFLUENZA [None]
  - ABDOMINAL DISTENSION [None]
  - JOINT SWELLING [None]
  - SWELLING FACE [None]
